FAERS Safety Report 7673844-0 (Version None)
Quarter: 2011Q3

REPORT INFORMATION
  Report Type: 
  Country: None (occurrence: None)
  Receive Date: 20110810
  Receipt Date: 20110804
  Transmission Date: 20111222
  Serious: Yes (Death, Hospitalization)
  Sender: FDA-Public Use
  Company Number: US-SANOFI-AVENTIS-2011SA049813

PATIENT
  Age: 50 Year
  Sex: Female

DRUGS (2)
  1. ELOXATIN [Suspect]
     Route: 041
     Dates: start: 20110620, end: 20110620
  2. ELOXATIN [Suspect]
     Route: 041
     Dates: start: 20110228, end: 20110228

REACTIONS (3)
  - DEATH [None]
  - JAUNDICE [None]
  - ANAEMIA [None]
